FAERS Safety Report 8809016 (Version 1)
Quarter: 2012Q4

REPORT INFORMATION
  Report Type: 
  Country: US (occurrence: US)
  Receive Date: 20120926
  Receipt Date: 20120926
  Transmission Date: 20130627
  Serious: No
  Sender: FDA-Public Use
  Company Number: US-PFIZER INC-2012235100

PATIENT
  Age: 69 Year
  Sex: Female
  Weight: 47.62 kg

DRUGS (3)
  1. PREMARIN [Suspect]
     Dosage: UNK
     Route: 067
     Dates: start: 20120920
  2. AMLODIPINE [Concomitant]
     Indication: HYPERTENSION
     Dosage: 10 mg, UNK
  3. ATENOLOL [Concomitant]
     Indication: HYPERTENSION
     Dosage: 50 mg, 2x/day

REACTIONS (1)
  - Headache [Unknown]
